FAERS Safety Report 12788317 (Version 1)
Quarter: 2016Q3

REPORT INFORMATION
  Report Type: Spontaneous
  Country: BA (occurrence: BA)
  Receive Date: 20160928
  Receipt Date: 20160928
  Transmission Date: 20161109
  Serious: Yes (Hospitalization)
  Sender: FDA-Public Use
  Company Number: BA-SUN PHARMACEUTICAL INDUSTRIES LTD-2016RR-124757

PATIENT
  Age: 22 Year
  Sex: Female

DRUGS (2)
  1. CIPROFLOXACIN. [Suspect]
     Active Substance: CIPROFLOXACIN
     Indication: HEADACHE
     Dosage: 500 MG 2 TIMES
     Route: 065
  2. CIPROFLOXACIN. [Suspect]
     Active Substance: CIPROFLOXACIN
     Indication: EAR INFECTION

REACTIONS (1)
  - Extrapyramidal disorder [Recovered/Resolved]
